FAERS Safety Report 23083269 (Version 1)
Quarter: 2023Q4

REPORT INFORMATION
  Report Type: Spontaneous
  Country: US (occurrence: None)
  Receive Date: 20231018
  Receipt Date: 20231018
  Transmission Date: 20240110
  Serious: Yes (Hospitalization)
  Sender: FDA-Public Use
  Company Number: None

PATIENT
  Sex: Female

DRUGS (3)
  1. ENTECAVIR [Suspect]
     Active Substance: ENTECAVIR
     Indication: Transaminases increased
     Dosage: FREQUENCY : DAILY;?
     Route: 048
     Dates: start: 20230907
  2. MYCOPHENOLIC ACID [Concomitant]
     Active Substance: MYCOPHENOLIC ACID
  3. OFEV [Concomitant]
     Active Substance: NINTEDANIB

REACTIONS (1)
  - Lung transplant [None]
